FAERS Safety Report 4863623-1 (Version None)
Quarter: 2005Q4

REPORT INFORMATION
  Report Type: 
  Country: None (occurrence: None)
  Receive Date: 20051222
  Receipt Date: 20050907
  Transmission Date: 20060501
  Serious: No
  Sender: FDA-Public Use
  Company Number: US-GLAXOSMITHKLINE-A0573328A

PATIENT
  Age: 69 Year
  Sex: Female

DRUGS (5)
  1. FLOVENT [Suspect]
     Indication: EMPHYSEMA
     Dosage: 2PUFF TWICE PER DAY
     Route: 055
  2. SEREVENT INH [Concomitant]
  3. PROVENTIL [Concomitant]
  4. PREDNISONE TAB [Concomitant]
  5. OXYGEN [Concomitant]

REACTIONS (4)
  - DRUG INEFFECTIVE [None]
  - DYSPNOEA [None]
  - FATIGUE [None]
  - MALAISE [None]
